FAERS Safety Report 8048092-5 (Version None)
Quarter: 2012Q1

REPORT INFORMATION
  Report Type: 
  Country: None (occurrence: None)
  Receive Date: 20120112
  Receipt Date: 20120112
  Transmission Date: 20120608
  Serious: No
  Sender: FDA-Public Use
  Company Number: None

PATIENT

DRUGS (1)
  1. DEPAKOTE ER [Suspect]
     Indication: CONVULSION
     Dosage: 500 MG 1 X DAILY

REACTIONS (2)
  - PRODUCT CONTAMINATION [None]
  - PRODUCT FORMULATION ISSUE [None]
